FAERS Safety Report 23507291 (Version 4)
Quarter: 2024Q3

REPORT INFORMATION
  Report Type: Spontaneous
  Country: US (occurrence: US)
  Receive Date: 20240209
  Receipt Date: 20240925
  Transmission Date: 20241017
  Serious: No
  Sender: BRISTOL MYERS SQUIBB
  Company Number: US-BRISTOL-MYERS SQUIBB COMPANY-2024-021778

PATIENT
  Age: 66 Year
  Sex: Female

DRUGS (1)
  1. REVLIMID [Suspect]
     Active Substance: LENALIDOMIDE
     Indication: Plasma cell myeloma
     Route: 048

REACTIONS (7)
  - Hepatic enzyme increased [Unknown]
  - Rash [Unknown]
  - Nasopharyngitis [Unknown]
  - Pruritus [Unknown]
  - Erythema [Unknown]
  - Constipation [Unknown]
  - Diarrhoea [Unknown]
